FAERS Safety Report 5900846-4 (Version None)
Quarter: 2008Q3

REPORT INFORMATION
  Report Type: 
  Country: None (occurrence: None)
  Receive Date: 20080925
  Receipt Date: 20080918
  Transmission Date: 20090109
  Serious: Yes (Life-Threatening)
  Sender: FDA-Public Use
  Company Number: 20244

PATIENT
  Age: 55 Year
  Sex: Female

DRUGS (6)
  1. PACLITAXEL [Suspect]
     Indication: LUNG ADENOCARCINOMA
     Dosage: 175 MG/M2 PER_CYCLE OTHER
  2. CARBOPLATIN [Concomitant]
  3. ONDANSETRON [Concomitant]
  4. DEXAMETHASONE [Concomitant]
  5. DEXCHLORPHENIRAMINE [Concomitant]
  6. RANITIDINE [Concomitant]

REACTIONS (9)
  - BACK PAIN [None]
  - BRADYARRHYTHMIA [None]
  - BUNDLE BRANCH BLOCK [None]
  - CARDIAC ARREST [None]
  - DYSPNOEA [None]
  - HYPERSENSITIVITY [None]
  - METASTASES TO BONE [None]
  - NAUSEA [None]
  - SINUS TACHYCARDIA [None]
